FAERS Safety Report 19441168 (Version 1)
Quarter: 2021Q2

REPORT INFORMATION
  Report Type: Spontaneous
  Country: US (occurrence: US)
  Receive Date: 20210617
  Receipt Date: 20210617
  Transmission Date: 20210717
  Serious: Yes (Other)
  Sender: FDA-Public Use
  Company Number: None

PATIENT
  Age: 45 Year
  Sex: Female
  Weight: 83.25 kg

DRUGS (2)
  1. METHAZOLAMIDE. [Suspect]
     Active Substance: METHAZOLAMIDE
     Indication: IDIOPATHIC INTRACRANIAL HYPERTENSION
  2. DIAMOX SEQUELS [Suspect]
     Active Substance: ACETAZOLAMIDE

REACTIONS (3)
  - Muscle spasms [None]
  - Transient ischaemic attack [None]
  - Choking [None]

NARRATIVE: CASE EVENT DATE: 20210609
